FAERS Safety Report 11289663 (Version 1)
Quarter: 2015Q3

REPORT INFORMATION
  Report Type: Spontaneous
  Country: GB (occurrence: GB)
  Receive Date: 20150721
  Receipt Date: 20150721
  Transmission Date: 20151125
  Serious: Yes (Death, Life-Threatening, Hospitalization, Other)
  Sender: FDA-Public Use
  Company Number: GB-ROXANE LABORATORIES, INC.-2015-RO-01181RO

PATIENT
  Age: 29 Year
  Sex: Male

DRUGS (1)
  1. DEXAMETHASONE. [Suspect]
     Active Substance: DEXAMETHASONE
     Indication: INTRACRANIAL MENINGIOMA MALIGNANT
     Route: 065
     Dates: start: 200912

REACTIONS (9)
  - Sepsis [Unknown]
  - Cushing^s syndrome [Unknown]
  - Urinary tract infection [Unknown]
  - Myopathy [Unknown]
  - Epidural lipomatosis [Unknown]
  - Cellulitis [Unknown]
  - Osteoporosis [Unknown]
  - Death [Fatal]
  - Diabetes mellitus [Unknown]

NARRATIVE: CASE EVENT DATE: 201105
